FAERS Safety Report 4725364-0 (Version None)
Quarter: 2005Q3

REPORT INFORMATION
  Report Type: 
  Country: None (occurrence: None)
  Receive Date: 20050721
  Receipt Date: 20050607
  Transmission Date: 20060218
  Serious: No
  Sender: FDA-Public Use
  Company Number: 2005SP001278

PATIENT
  Age: 59 Year
  Sex: Female
  Weight: 72.5755 kg

DRUGS (2)
  1. LUNESTA [Suspect]
     Dosage: 2 MG; HS; ORAL,  4 MG; HS; ORAL
     Route: 048
     Dates: start: 20050530, end: 20050531
  2. LUNESTA [Suspect]
     Dosage: 2 MG; HS; ORAL,  4 MG; HS; ORAL
     Route: 048
     Dates: start: 20050601

REACTIONS (2)
  - DYSGEUSIA [None]
  - INITIAL INSOMNIA [None]
